FAERS Safety Report 6098601-0 (Version None)
Quarter: 2009Q1

REPORT INFORMATION
  Report Type: 
  Country: None (occurrence: None)
  Receive Date: 20090302
  Receipt Date: 20090224
  Transmission Date: 20090719
  Serious: Yes (Other)
  Sender: FDA-Public Use
  Company Number: US-BIOGENIDEC-2008BI033026

PATIENT
  Age: 52 Year
  Sex: Female

DRUGS (6)
  1. AVONEX [Suspect]
     Indication: MULTIPLE SCLEROSIS
     Route: 030
     Dates: start: 19980501, end: 20070101
  2. AMANTADINE HCL [Concomitant]
     Indication: FATIGUE
  3. BACLOFEN [Concomitant]
     Indication: MULTIPLE SCLEROSIS RELAPSE
  4. DIAZEPAM [Concomitant]
     Indication: MULTIPLE SCLEROSIS RELAPSE
  5. METHOTREXATE [Concomitant]
     Indication: MULTIPLE SCLEROSIS
     Dates: start: 20060101, end: 20080201
  6. ZANAFLEX [Concomitant]
     Indication: MUSCLE SPASTICITY

REACTIONS (3)
  - ANAPHYLACTIC SHOCK [None]
  - CHONDROPATHY [None]
  - NEUTRALISING ANTIBODIES POSITIVE [None]
